FAERS Safety Report 15650043 (Version 1)
Quarter: 2018Q4

REPORT INFORMATION
  Report Type: Spontaneous
  Country: DE (occurrence: DE)
  Receive Date: 20181123
  Receipt Date: 20181123
  Transmission Date: 20190205
  Serious: Yes (Hospitalization, Other)
  Sender: FDA-Public Use
  Company Number: DE-TEVA-2018-DE-977404

PATIENT
  Age: 68 Year
  Sex: Male

DRUGS (3)
  1. FENOFIBRATE. [Suspect]
     Active Substance: FENOFIBRATE
     Indication: TYPE V HYPERLIPIDAEMIA
     Dosage: 2 DOSAGE FORMS DAILY; 1 DF, BID
     Route: 065
     Dates: start: 2004, end: 20050128
  2. LOCOL (FLUVASTATIN SODIUM) [Interacting]
     Active Substance: FLUVASTATIN SODIUM
     Indication: TYPE V HYPERLIPIDAEMIA
     Dosage: 80 MILLIGRAM DAILY; DAILY DOSE: 80 MG MILLGRAM(S) EVERY DAY
     Route: 048
     Dates: start: 2004, end: 20050128
  3. NIASPAN [Interacting]
     Active Substance: NIACIN
     Indication: TYPE V HYPERLIPIDAEMIA
     Dosage: UNK, UNK
     Route: 065
     Dates: start: 2004

REACTIONS (5)
  - Drug interaction [Unknown]
  - Peripheral nerve operation [Unknown]
  - Myopathy [Recovering/Resolving]
  - Rhabdomyolysis [Recovered/Resolved]
  - Blood creatine phosphokinase increased [Recovered/Resolved]

NARRATIVE: CASE EVENT DATE: 200501
